FAERS Safety Report 23531523 (Version 1)
Quarter: 2024Q1

REPORT INFORMATION
  Report Type: Spontaneous
  Country: US (occurrence: None)
  Receive Date: 20240215
  Receipt Date: 20240215
  Transmission Date: 20240409
  Serious: Yes (Other)
  Sender: FDA-Public Use
  Company Number: None

PATIENT
  Age: 45 Year
  Sex: Female
  Weight: 63 kg

DRUGS (7)
  1. CHLORAPREP [Suspect]
     Active Substance: CHLORHEXIDINE GLUCONATE\ISOPROPYL ALCOHOL
     Indication: Antibiotic prophylaxis
     Dates: start: 20240209, end: 20240209
  2. MIRENA [Concomitant]
     Active Substance: LEVONORGESTREL
  3. LEVALBUTEROL [Concomitant]
     Active Substance: LEVALBUTEROL
  4. FLUTICASONE PROPIONATE [Concomitant]
     Active Substance: FLUTICASONE PROPIONATE
  5. EPIPEN [Concomitant]
     Active Substance: EPINEPHRINE
  6. VITAMINS [Concomitant]
     Active Substance: VITAMINS
  7. VITAMIN D [Concomitant]
     Active Substance: VITAMIN D NOS

REACTIONS (3)
  - Asthma [None]
  - Urticaria [None]
  - Dermatitis contact [None]

NARRATIVE: CASE EVENT DATE: 20240209
